FAERS Safety Report 17717426 (Version 2)
Quarter: 2022Q1

REPORT INFORMATION
  Report Type: Spontaneous
  Country: US (occurrence: US)
  Receive Date: 20200428
  Receipt Date: 20220120
  Transmission Date: 20220423
  Serious: No
  Sender: FDA-Public Use
  Company Number: US-PFIZER INC-2020170263

PATIENT
  Age: 76 Year
  Sex: Female
  Weight: 76.7 kg

DRUGS (2)
  1. IBRANCE [Suspect]
     Active Substance: PALBOCICLIB
     Indication: Breast cancer
     Dosage: 100 MG, CYCLIC (21 DAYS FOLLOWED BY 7 DAYS OFF)
     Route: 048
     Dates: start: 202001
  2. IBRANCE [Suspect]
     Active Substance: PALBOCICLIB
     Dosage: 100 MG, CYCLIC, (100MG DAILY FOR 21 DAYS FOLLOWED BY A 7-DAY BREAK)
     Dates: start: 20200629

REACTIONS (3)
  - Neoplasm progression [Unknown]
  - Dry skin [Unknown]
  - Skin exfoliation [Unknown]

NARRATIVE: CASE EVENT DATE: 20200101
